FAERS Safety Report 22032420 (Version 2)
Quarter: 2023Q1

REPORT INFORMATION
  Report Type: Other
  Country: US (occurrence: None)
  Receive Date: 20230224
  Receipt Date: 20230301
  Transmission Date: 20230417
  Serious: Yes (Hospitalization)
  Sender: FDA-Public Use
  Company Number: US-ROCHE-3289857

PATIENT
  Age: 48 Year
  Sex: Female
  Weight: 56.750 kg

DRUGS (4)
  1. OCREVUS [Suspect]
     Active Substance: OCRELIZUMAB
     Indication: Relapsing-remitting multiple sclerosis
     Dosage: 600MG EVERY 6 MONTHS
     Route: 042
     Dates: start: 201609
  2. OCREVUS [Suspect]
     Active Substance: OCRELIZUMAB
     Dosage: HER LAST OCREVUS INFUSION WAS 03/AUG/2021
     Route: 065
     Dates: start: 20171031
  3. BACLOFEN [Concomitant]
     Active Substance: BACLOFEN
  4. PAXLOVID [Concomitant]
     Active Substance: NIRMATRELVIR\RITONAVIR

REACTIONS (4)
  - Urinary tract infection [Not Recovered/Not Resolved]
  - COVID-19 pneumonia [Recovered/Resolved]
  - Tremor [Not Recovered/Not Resolved]
  - Gait disturbance [Not Recovered/Not Resolved]

NARRATIVE: CASE EVENT DATE: 20220101
